FAERS Safety Report 18139115 (Version 3)
Quarter: 2020Q3

REPORT INFORMATION
  Report Type: Report from Study
  Country: CO (occurrence: CO)
  Receive Date: 20200812
  Receipt Date: 20200908
  Transmission Date: 20201103
  Serious: Yes (Hospitalization, Other)
  Sender: FDA-Public Use
  Company Number: NVSC2020CO110617

PATIENT
  Age: 46 Year
  Sex: Female
  Weight: 74 kg

DRUGS (8)
  1. FEMARA [Suspect]
     Active Substance: LETROZOLE
     Indication: BREAST CANCER METASTATIC
     Dosage: 2.5 MG, QD
     Route: 048
     Dates: start: 20190525, end: 202001
  2. KISQALI [Suspect]
     Active Substance: RIBOCICLIB
     Dosage: 200 MG, QD
     Route: 048
     Dates: start: 20200513
  3. BISACODYL. [Concomitant]
     Active Substance: BISACODYL
     Indication: CONSTIPATION
     Dosage: UNK, QD
     Route: 065
  4. CALCIUM [Concomitant]
     Active Substance: CALCIUM
     Indication: PROPHYLAXIS
     Dosage: UNK
     Route: 065
  5. FEMARA [Suspect]
     Active Substance: LETROZOLE
     Dosage: 2.5 MG, QD
     Route: 048
     Dates: start: 20200513
  6. KISQALI [Suspect]
     Active Substance: RIBOCICLIB
     Indication: BREAST CANCER METASTATIC
     Dosage: 200 MG, QD
     Route: 048
     Dates: start: 20190225, end: 202001
  7. KISQALI [Suspect]
     Active Substance: RIBOCICLIB
     Dosage: 600 MG, QD
     Route: 048
  8. ZOLEDRONIC ACID [Suspect]
     Active Substance: ZOLEDRONIC ACID
     Indication: METASTASES TO BONE
     Dosage: UNK, Q3MO
     Route: 042

REACTIONS (15)
  - Pulmonary pain [Unknown]
  - Pain in extremity [Unknown]
  - Pain [Unknown]
  - Musculoskeletal chest pain [Unknown]
  - Off label use [Unknown]
  - Bone pain [Unknown]
  - Malignant neoplasm progression [Unknown]
  - Dysstasia [Unknown]
  - Illness [Unknown]
  - Lung disorder [Unknown]
  - Breast cancer metastatic [Unknown]
  - Discomfort [Unknown]
  - Breast pain [Unknown]
  - Hypoaesthesia [Unknown]
  - Product dose omission issue [Unknown]

NARRATIVE: CASE EVENT DATE: 202003
